FAERS Safety Report 18736806 (Version 1)
Quarter: 2021Q1

REPORT INFORMATION
  Report Type: Spontaneous
  Country: PL (occurrence: PL)
  Receive Date: 20210113
  Receipt Date: 20210113
  Transmission Date: 20210419
  Serious: Yes (Hospitalization)
  Sender: FDA-Public Use
  Company Number: NVSC2020PL128186

PATIENT
  Age: 47 Year
  Sex: Female
  Weight: 75.5 kg

DRUGS (13)
  1. METHOTREXATE ^EBEWE^ [Suspect]
     Active Substance: METHOTREXATE
     Dosage: 3 DF, QW (5 MG)
     Route: 058
     Dates: start: 20190529, end: 20190626
  2. CONTIX [Concomitant]
     Indication: PRODUCT USED FOR UNKNOWN INDICATION
     Dosage: 1 DF, QD (ON AN EMPTY STOMACH)
     Route: 048
     Dates: start: 20190911, end: 20191017
  3. SULFASALAZINE. [Concomitant]
     Active Substance: SULFASALAZINE
     Indication: PRODUCT USED FOR UNKNOWN INDICATION
     Dosage: 3 MG, QD
     Route: 065
     Dates: start: 20190718, end: 20190905
  4. IXEKIZUMAB [Concomitant]
     Active Substance: IXEKIZUMAB
     Indication: SKIN LESION
     Dosage: UNK
     Route: 065
     Dates: end: 201812
  5. METHOTREXATE ^EBEWE^ [Suspect]
     Active Substance: METHOTREXATE
     Dosage: 4 DF, QW (5 MG)
     Route: 065
     Dates: start: 20190703, end: 20190904
  6. CYCLOSPORIN A [Concomitant]
     Active Substance: CYCLOSPORINE
     Indication: PSORIATIC ARTHROPATHY
     Dosage: 3 MG/KG, UNKNOWN
     Route: 065
     Dates: start: 20091023, end: 20100123
  7. METHOTREXATE ^EBEWE^ [Suspect]
     Active Substance: METHOTREXATE
     Dosage: 25 MG, QW
     Route: 065
     Dates: start: 201908, end: 20191028
  8. RANOFREN [Concomitant]
     Indication: PRODUCT USED FOR UNKNOWN INDICATION
     Dosage: 1 DF, QD
     Route: 065
  9. ACIDUM FOLICUM [Concomitant]
     Active Substance: FOLIC ACID
     Indication: PSORIATIC ARTHROPATHY
     Dosage: 15 MG, QW
     Route: 048
     Dates: start: 20190529, end: 20191016
  10. METHOTREXATE ^EBEWE^ [Suspect]
     Active Substance: METHOTREXATE
     Indication: PRODUCT USED FOR UNKNOWN INDICATION
     Dosage: 12.5 MG, QW
     Route: 065
     Dates: start: 200903, end: 200909
  11. METEX [METHOTREXATE SODIUM] [Suspect]
     Active Substance: METHOTREXATE SODIUM
     Indication: PSORIATIC ARTHROPATHY
     Dosage: 25 MG, QW
     Route: 058
     Dates: start: 20190911, end: 20191016
  12. HEPAREGEN [Concomitant]
     Indication: PRODUCT USED FOR UNKNOWN INDICATION
     Dosage: 2 DF, BID
     Route: 065
  13. CYCLOSPORIN A [Concomitant]
     Active Substance: CYCLOSPORINE
     Indication: PSORIASIS

REACTIONS (3)
  - Musculoskeletal discomfort [Unknown]
  - Transaminases increased [Unknown]
  - Gastroenteritis [Recovered/Resolved with Sequelae]

NARRATIVE: CASE EVENT DATE: 20191017
